FAERS Safety Report 25271557 (Version 3)
Quarter: 2025Q3

REPORT INFORMATION
  Report Type: Report from Study
  Country: US (occurrence: US)
  Receive Date: 20250506
  Receipt Date: 20250814
  Transmission Date: 20251021
  Serious: No
  Sender: SUNOVION
  Company Number: US-SMPA-2025SPA004336AA

PATIENT
  Age: 75 Year
  Sex: Male

DRUGS (1)
  1. ORGOVYX [Suspect]
     Active Substance: RELUGOLIX
     Indication: Prostate cancer
     Dosage: 120 MG, QD
     Route: 048
     Dates: start: 20250409

REACTIONS (4)
  - Liver function test increased [Unknown]
  - Post procedural diarrhoea [Unknown]
  - Weight increased [Unknown]
  - Incorrect dose administered [Recovered/Resolved]
